FAERS Safety Report 8470707-8 (Version None)
Quarter: 2012Q2

REPORT INFORMATION
  Report Type: 
  Country: None (occurrence: None)
  Receive Date: 20120627
  Receipt Date: 20120618
  Transmission Date: 20120825
  Serious: Yes (Life-Threatening, Other)
  Sender: FDA-Public Use
  Company Number: DE-PFIZER INC-2012152206

PATIENT
  Age: 52 Year
  Sex: Male

DRUGS (11)
  1. PALIPERIDONE PALMITATE [Suspect]
     Dosage: 100 MG, SINGLE
     Route: 030
     Dates: start: 20110810, end: 20110810
  2. ALDACTONE [Suspect]
     Indication: PRODUCT USED FOR UNKNOWN INDICATION
     Dosage: 50 MG/DAY
     Route: 048
  3. RISPERDAL [Suspect]
     Indication: PRODUCT USED FOR UNKNOWN INDICATION
     Dosage: 4 MG/DAY
     Route: 048
     Dates: start: 20110814, end: 20110822
  4. LORAZEPAM [Concomitant]
     Dosage: UNK
     Dates: start: 20110729
  5. FOLIC ACID [Concomitant]
     Dosage: UNK
     Dates: start: 20110812
  6. ACETYLSALICYLIC ACID [Concomitant]
     Dosage: UNK
  7. RAMIPRIL [Suspect]
     Indication: PRODUCT USED FOR UNKNOWN INDICATION
     Dosage: 5 MG/DAY
     Route: 048
  8. PALIPERIDONE PALMITATE [Suspect]
     Indication: PRODUCT USED FOR UNKNOWN INDICATION
     Dosage: 150 MG, SINGLE
     Route: 030
     Dates: start: 20110802, end: 20110802
  9. CIATYL-Z ACUPHASE [Suspect]
     Indication: PRODUCT USED FOR UNKNOWN INDICATION
     Dosage: 100 MG, SINGLE
     Route: 030
     Dates: start: 20110816, end: 20110816
  10. CARVEDILOL [Concomitant]
     Dosage: UNK
  11. VITAMIN B-12 [Concomitant]
     Dosage: UNK
     Dates: start: 20110812

REACTIONS (6)
  - HYPONATRAEMIA [None]
  - VOMITING [None]
  - DIARRHOEA [None]
  - ALTERED STATE OF CONSCIOUSNESS [None]
  - BLOOD PRESSURE INCREASED [None]
  - EPILEPSY [None]
